FAERS Safety Report 5817339-5 (Version None)
Quarter: 2008Q3

REPORT INFORMATION
  Report Type: 
  Country: None (occurrence: None)
  Receive Date: 20080715
  Receipt Date: 20080703
  Transmission Date: 20090109
  Serious: Yes (Death)
  Sender: FDA-Public Use
  Company Number: GXKR2008GB06267

PATIENT
  Age: 27 Year
  Sex: Female

DRUGS (4)
  1. BISOPROLOL (NGX) (BISOPROLOL) [Suspect]
     Indication: HYPERTENSION
  2. WARFARIN SODIUM [Suspect]
     Indication: ANTICOAGULANT THERAPY
  3. ATENOLOL [Concomitant]
  4. DALTEPARIN SODIUM [Concomitant]

REACTIONS (13)
  - ACUTE LEFT VENTRICULAR FAILURE [None]
  - AORTIC THROMBOSIS [None]
  - CAESAREAN SECTION [None]
  - CARDIAC VALVE DISEASE [None]
  - CYST [None]
  - DRUG EXPOSURE DURING PREGNANCY [None]
  - FALL [None]
  - GLASGOW COMA SCALE ABNORMAL [None]
  - LOSS OF CONSCIOUSNESS [None]
  - NERVOUS SYSTEM DISORDER [None]
  - NUCLEAR MAGNETIC RESONANCE IMAGING ABNORMAL [None]
  - PREGNANCY [None]
  - TREATMENT NONCOMPLIANCE [None]
